FAERS Safety Report 7749991-1 (Version None)
Quarter: 2011Q3

REPORT INFORMATION
  Report Type: 
  Country: None (occurrence: None)
  Receive Date: 20110912
  Receipt Date: 20110829
  Transmission Date: 20111222
  Serious: Yes (Hospitalization)
  Sender: FDA-Public Use
  Company Number: DSA_47557_2011

PATIENT
  Age: 62 Year
  Sex: Female

DRUGS (8)
  1. LEVOTHYROXINE SODIUM [Concomitant]
  2. DILTIAZEM HYDROCHLORIDE [Suspect]
     Indication: TACHYCARDIA
     Dosage: (60 MG BID ORAL)
     Route: 048
     Dates: start: 20100701, end: 20100801
  3. PREVISCAN [Concomitant]
  4. DIGOXIN [Concomitant]
  5. INSULIN [Concomitant]
  6. ATACAND [Concomitant]
  7. ALDACTONE [Concomitant]
  8. LASIX [Concomitant]

REACTIONS (6)
  - DYSPNOEA [None]
  - PULMONARY ARTERIAL HYPERTENSION [None]
  - MITRAL VALVE INCOMPETENCE [None]
  - ACUTE RESPIRATORY DISTRESS SYNDROME [None]
  - ASTHENIA [None]
  - OEDEMA [None]
